FAERS Safety Report 8063028-9 (Version None)
Quarter: 2012Q1

REPORT INFORMATION
  Report Type: 
  Country: None (occurrence: None)
  Receive Date: 20120123
  Receipt Date: 20120112
  Transmission Date: 20120608
  Serious: Yes (Hospitalization, Congenital Anomaly, Other)
  Sender: FDA-Public Use
  Company Number: US-PFIZER INC-2011158612

PATIENT
  Sex: Male

DRUGS (3)
  1. SYNTHROID [Concomitant]
     Indication: HYPOTHYROIDISM
     Route: 064
  2. EFFEXOR XR [Suspect]
     Dosage: 75 MG, UNK
     Route: 064
     Dates: start: 20060901
  3. VICODIN [Concomitant]
     Route: 064

REACTIONS (9)
  - MATERNAL EXPOSURE TIMING UNSPECIFIED [None]
  - HYDROCEPHALUS [None]
  - CEREBRAL VENTRICLE DILATATION [None]
  - HYPOVENTILATION [None]
  - MYELODYSPLASTIC SYNDROME [None]
  - HYDRONEPHROSIS [None]
  - RESPIRATORY DISTRESS [None]
  - MENINGOMYELOCELE [None]
  - ARNOLD-CHIARI MALFORMATION [None]
